FAERS Safety Report 5101159-3 (Version None)
Quarter: 2006Q3

REPORT INFORMATION
  Report Type: 
  Country: None (occurrence: None)
  Receive Date: 20060731
  Receipt Date: 20060411
  Transmission Date: 20061208
  Serious: No
  Sender: FDA-Public Use
  Company Number: 2006PV011920

PATIENT
  Age: 53 Year
  Sex: Female

DRUGS (7)
  1. BYETTA [Suspect]
     Indication: DIABETES MELLITUS NON-INSULIN-DEPENDENT
     Dosage: SEE IMAGE
     Route: 058
     Dates: start: 20060214, end: 20060315
  2. BYETTA [Suspect]
     Indication: DIABETES MELLITUS NON-INSULIN-DEPENDENT
     Dosage: SEE IMAGE
     Route: 058
     Dates: start: 20060316
  3. GLUCOPHAGE [Concomitant]
  4. MORPHINE [Concomitant]
  5. XANAX XR [Concomitant]
  6. WELLBUTRIN [Concomitant]
  7. METHADONE [Concomitant]

REACTIONS (4)
  - BLOOD GLUCOSE DECREASED [None]
  - FATIGUE [None]
  - FEELING ABNORMAL [None]
  - FEELING JITTERY [None]
